FAERS Safety Report 18975656 (Version 2)
Quarter: 2021Q1

REPORT INFORMATION
  Report Type: Spontaneous
  Country: BR (occurrence: BR)
  Receive Date: 20210305
  Receipt Date: 20210319
  Transmission Date: 20210420
  Serious: Yes (Life-Threatening, Other)
  Sender: FDA-Public Use
  Company Number: BR-009507513-2103BRA001652

PATIENT
  Sex: Female
  Weight: 49 kg

DRUGS (10)
  1. JANUVIA [Suspect]
     Active Substance: SITAGLIPTIN PHOSPHATE
     Indication: DIABETES MELLITUS
     Dosage: 100 MILLIGRAM (1 TABLET) DAILY
     Dates: start: 2018
  2. CALCIUM CARBONATE. [Suspect]
     Active Substance: CALCIUM CARBONATE
     Indication: PROPHYLAXIS
     Dosage: 500 MILLIGRAM (1 TABLET), DAILY
     Route: 048
     Dates: end: 2021
  3. EPOTIN [Concomitant]
     Indication: ANTICOAGULANT THERAPY
     Dosage: 3000 INTERNATIONAL UNITS
  4. VITAMINS (UNSPECIFIED) [Suspect]
     Active Substance: VITAMINS
     Dosage: UNK
     Dates: end: 2021
  5. OLANZAPINE. [Concomitant]
     Active Substance: OLANZAPINE
     Indication: BIPOLAR DISORDER
  6. CALCIUM CARBONATE. [Suspect]
     Active Substance: CALCIUM CARBONATE
     Dosage: 2 TABLETS A DAY
  7. LOSARTAN. [Concomitant]
     Active Substance: LOSARTAN
     Indication: HYPERTENSION
  8. LEVOTHYROXINE SODIUM. [Concomitant]
     Active Substance: LEVOTHYROXINE SODIUM
     Indication: THYROID DISORDER
  9. ASPIRIN. [Suspect]
     Active Substance: ASPIRIN
     Indication: ANTICOAGULANT THERAPY
     Dosage: ONCE DAILY AFTER LUNCH
     Route: 048
     Dates: end: 2021
  10. EPOTIN [Concomitant]
     Dosage: 4000 INTERNATIONAL UNITS

REACTIONS (4)
  - Chronic kidney disease [Not Recovered/Not Resolved]
  - Weight decreased [Unknown]
  - Choking [Recovered/Resolved]
  - Dyspepsia [Not Recovered/Not Resolved]

NARRATIVE: CASE EVENT DATE: 20210228
